FAERS Safety Report 14224005 (Version 1)
Quarter: 2017Q4

REPORT INFORMATION
  Report Type: Spontaneous
  Country: US (occurrence: US)
  Receive Date: 20171122
  Receipt Date: 20171122
  Transmission Date: 20180321
  Serious: Yes (Disabling)
  Sender: FDA-Public Use
  Company Number: None

PATIENT
  Age: 64 Year
  Sex: Female
  Weight: 65.7 kg

DRUGS (17)
  1. LITHIUM CARBONATE. [Suspect]
     Active Substance: LITHIUM CARBONATE
     Indication: BIPOLAR DISORDER
     Dates: start: 19920101, end: 20170430
  2. CHAMOMILLE [Concomitant]
  3. TURMERIC [Concomitant]
     Active Substance: HERBALS\TURMERIC
  4. TEA [Concomitant]
     Active Substance: TEA LEAF
  5. MULTIVITAMIN + MINERALS [Concomitant]
  6. LECITHIN [Concomitant]
     Active Substance: LECITHIN
  7. VITAMIN B-COMPLEX [Concomitant]
     Active Substance: DEXPANTHENOL\NIACINAMIDE\PYRIDOXINE HYDROCHLORIDE\RIBOFLAVIN 5^-PHOSPHATE SODIUM\THIAMINE HYDROCHLORIDE
  8. MELATONIN [Concomitant]
     Active Substance: MELATONIN
  9. FISH OIL [Concomitant]
     Active Substance: FISH OIL
  10. ZINC. [Concomitant]
     Active Substance: ZINC
  11. MAGNESIUM [Concomitant]
     Active Substance: MAGNESIUM
  12. VITAMIN C [Concomitant]
     Active Substance: ASCORBIC ACID
  13. METOPROLOL. [Concomitant]
     Active Substance: METOPROLOL
  14. QUETIAPINE. [Concomitant]
     Active Substance: QUETIAPINE
  15. FLAXSEED [Concomitant]
     Active Substance: FLAX SEED
  16. SELENIUM [Concomitant]
     Active Substance: SELENIUM
  17. LEVOTHYROXINE. [Concomitant]
     Active Substance: LEVOTHYROXINE

REACTIONS (3)
  - Hypercalcaemia [None]
  - Hyperparathyroidism primary [None]
  - Overdose [None]

NARRATIVE: CASE EVENT DATE: 20160301
